FAERS Safety Report 8275139-3 (Version None)
Quarter: 2012Q2

REPORT INFORMATION
  Report Type: 
  Country: None (occurrence: None)
  Receive Date: 20120411
  Receipt Date: 20120403
  Transmission Date: 20120825
  Serious: Yes (Other)
  Sender: FDA-Public Use
  Company Number: PHHY2012IT028653

PATIENT
  Sex: Female

DRUGS (3)
  1. CARVEDILOL [Suspect]
  2. ENALAPRIL MALEATE [Suspect]
  3. FUROSEMIDE [Suspect]

REACTIONS (3)
  - NAUSEA [None]
  - VERTIGO [None]
  - ORTHOSTATIC HYPOTENSION [None]
